FAERS Safety Report 8983966 (Version 1)
Quarter: 2012Q4

REPORT INFORMATION
  Report Type: Spontaneous
  Country: US (occurrence: None)
  Receive Date: 20121218
  Receipt Date: 20121218
  Transmission Date: 20130627
  Serious: Yes (Other)
  Sender: FDA-Public Use
  Company Number: None

PATIENT
  Age: 50 Year
  Sex: Female
  Weight: 72.58 kg

DRUGS (1)
  1. ATORVASTATIN [Suspect]
     Indication: ACID REFLUX (ESOPHAGEAL)
     Dates: start: 200902

REACTIONS (6)
  - Product quality issue [None]
  - Product contamination physical [None]
  - Dysphagia [None]
  - Sensation of foreign body [None]
  - Asphyxia [None]
  - Product substitution issue [None]
